FAERS Safety Report 8564167-6 (Version None)
Quarter: 2012Q3

REPORT INFORMATION
  Report Type: 
  Country: None (occurrence: None)
  Receive Date: 20120723
  Receipt Date: 20120712
  Transmission Date: 20120928
  Serious: Yes (Other)
  Sender: FDA-Public Use
  Company Number: AUR-APL-2012-03098

PATIENT
  Age: 19 Year
  Sex: Female

DRUGS (2)
  1. CEFTRIAXONE [Suspect]
     Indication: GONORRHOEA
  2. ECULIZUMAB (ECULIZUMAB) [Suspect]
     Indication: PAROXYSMAL NOCTURNAL HAEMOGLOBINURIA
     Dosage: EVERY OTHER WEEK, INTRAVENOUS
     Route: 042

REACTIONS (15)
  - DIZZINESS [None]
  - ABDOMINAL PAIN [None]
  - TACHYCARDIA [None]
  - VOMITING [None]
  - GONORRHOEA [None]
  - HEADACHE [None]
  - HAEMOGLOBIN DECREASED [None]
  - RASH [None]
  - SEPTIC SHOCK [None]
  - PULSE PRESSURE DECREASED [None]
  - PLATELET COUNT DECREASED [None]
  - PYREXIA [None]
  - NAUSEA [None]
  - BALANCE DISORDER [None]
  - PERIPHERAL COLDNESS [None]
